FAERS Safety Report 13567457 (Version 1)
Quarter: 2017Q2

REPORT INFORMATION
  Report Type: Spontaneous
  Country: US (occurrence: US)
  Receive Date: 20170522
  Receipt Date: 20170522
  Transmission Date: 20170830
  Serious: No
  Sender: FDA-Public Use
  Company Number: US-PFIZER INC-2017215583

PATIENT
  Sex: Female

DRUGS (1)
  1. LIDOCAINE HCL [Suspect]
     Active Substance: LIDOCAINE HYDROCHLORIDE
     Dosage: 30 ML, UNK

REACTIONS (3)
  - Product package associated injury [Not Recovered/Not Resolved]
  - Laceration [Not Recovered/Not Resolved]
  - Product outer packaging issue [Not Recovered/Not Resolved]
